FAERS Safety Report 24383706 (Version 2)
Quarter: 2024Q4

REPORT INFORMATION
  Report Type: Spontaneous
  Country: CA (occurrence: CA)
  Receive Date: 20241001
  Receipt Date: 20241206
  Transmission Date: 20250115
  Serious: Yes (Hospitalization)
  Sender: HIKMA
  Company Number: CA-HIKMA PHARMACEUTICALS-CA-H14001-24-08811

PATIENT
  Age: 30 Year
  Sex: Male

DRUGS (3)
  1. CISPLATIN [Suspect]
     Active Substance: CISPLATIN
     Indication: Haematological neoplasm
     Dosage: 158 MILLIGRAM (DAY 1)
     Route: 042
     Dates: start: 20240812
  2. DEXAMETHASONE [Suspect]
     Active Substance: DEXAMETHASONE
     Indication: Haematological neoplasm
     Dosage: 40 MILLIGRAM; DAYS 1 TO 4
     Route: 048
     Dates: start: 20240812
  3. GEMCITABINE HYDROCHLORIDE [Suspect]
     Active Substance: GEMCITABINE HYDROCHLORIDE
     Indication: Haematological neoplasm
     Dosage: 2110 MILLIGRAM; DAY 1, DAY 8
     Route: 042
     Dates: start: 20240812

REACTIONS (5)
  - COVID-19 [Recovered/Resolved]
  - Pyrexia [Unknown]
  - Vomiting [Unknown]
  - Upper respiratory tract infection [Unknown]
  - Oxygen saturation decreased [Recovered/Resolved]

NARRATIVE: CASE EVENT DATE: 20240905
